FAERS Safety Report 5475021-0 (Version None)
Quarter: 2007Q4

REPORT INFORMATION
  Report Type: 
  Country: None (occurrence: None)
  Receive Date: 20071002
  Receipt Date: 20070921
  Transmission Date: 20080405
  Serious: Yes (Hospitalization, Other)
  Sender: FDA-Public Use
  Company Number: US-ELI_LILLY_AND_COMPANY-US200709004660

PATIENT
  Sex: Male

DRUGS (13)
  1. HUMALOG [Suspect]
     Dosage: UNK, UNK
     Dates: start: 20060101
  2. HUMULIN 70/30 [Suspect]
     Dosage: UNK, UNK
     Dates: start: 20020101, end: 20060101
  3. LANTUS [Concomitant]
  4. LIPITOR [Concomitant]
  5. OMEPRAZOLE [Concomitant]
  6. LISINOPRIL [Concomitant]
  7. BUMETANIDE [Concomitant]
  8. NEURONTIN [Concomitant]
  9. METOPROLOL [Concomitant]
  10. TERAZOSIN HCL [Concomitant]
  11. CALCITRIOL [Concomitant]
  12. VITAMIN D [Concomitant]
  13. SIMVASTATIN [Concomitant]

REACTIONS (10)
  - DRUG INEFFECTIVE [None]
  - FALL [None]
  - LEG AMPUTATION [None]
  - LIVER DISORDER [None]
  - LOCALISED INFECTION [None]
  - OEDEMA PERIPHERAL [None]
  - PNEUMONIA [None]
  - PYREXIA [None]
  - RENAL FAILURE ACUTE [None]
  - SEPSIS [None]
